FAERS Safety Report 11265130 (Version 1)
Quarter: 2015Q3

REPORT INFORMATION
  Report Type: Spontaneous
  Country: US (occurrence: None)
  Receive Date: 20150710
  Receipt Date: 20150710
  Transmission Date: 20151125
  Serious: Yes (Other)
  Sender: FDA-Public Use
  Company Number: None

PATIENT
  Age: 41 Year
  Sex: Female
  Weight: 77.11 kg

DRUGS (6)
  1. SAPHRIS [Suspect]
     Active Substance: ASENAPINE MALEATE
     Indication: SLEEP DISORDER
     Dosage: TAKEN UNDER THE TONGUE
     Route: 060
     Dates: start: 20150702, end: 20150708
  2. LAMOTRIGINE. [Concomitant]
     Active Substance: LAMOTRIGINE
  3. GABAPENTIN. [Concomitant]
     Active Substance: GABAPENTIN
  4. BUPROPION SR [Concomitant]
     Active Substance: BUPROPION
  5. SAPHRIS [Suspect]
     Active Substance: ASENAPINE MALEATE
     Indication: BIPOLAR DISORDER
     Dosage: TAKEN UNDER THE TONGUE
     Route: 060
     Dates: start: 20150702, end: 20150708
  6. ESZOPICLONE. [Concomitant]
     Active Substance: ESZOPICLONE

REACTIONS (4)
  - Drug monitoring procedure not performed [None]
  - Psychotic disorder [None]
  - Speech disorder [None]
  - Peripheral swelling [None]

NARRATIVE: CASE EVENT DATE: 20150702
